FAERS Safety Report 12878523 (Version 2)
Quarter: 2016Q4

REPORT INFORMATION
  Report Type: Spontaneous
  Country: AU (occurrence: AU)
  Receive Date: 20161024
  Receipt Date: 20161129
  Transmission Date: 20170207
  Serious: Yes (Other)
  Sender: FDA-Public Use
  Company Number: PHHY2016AU143836

PATIENT
  Age: 19 Year

DRUGS (1)
  1. PASIREOTIDE [Suspect]
     Active Substance: PASIREOTIDE
     Indication: ACROMEGALY
     Route: 065
     Dates: start: 2013

REACTIONS (2)
  - Pain [Recovering/Resolving]
  - Diabetes mellitus [Recovering/Resolving]
